FAERS Safety Report 16818800 (Version 2)
Quarter: 2019Q3

REPORT INFORMATION
  Report Type: Spontaneous
  Country: US (occurrence: US)
  Receive Date: 20190917
  Receipt Date: 20190927
  Transmission Date: 20191005
  Serious: Yes (Other)
  Sender: FDA-Public Use
  Company Number: US-TEVA-2019-US-1108552

PATIENT
  Age: 40 Year
  Sex: Male

DRUGS (4)
  1. DUPILUMAB [Suspect]
     Active Substance: DUPILUMAB
     Indication: DERMATITIS ATOPIC
     Route: 065
  2. APREMILAST [Suspect]
     Active Substance: APREMILAST
     Indication: ERYTHRODERMIC PSORIASIS
  3. METHOTREXATE. [Suspect]
     Active Substance: METHOTREXATE
     Route: 065
  4. APREMILAST [Suspect]
     Active Substance: APREMILAST
     Indication: PSORIASIS
     Route: 065

REACTIONS (4)
  - Psoriasis [Unknown]
  - Symptom masked [Unknown]
  - Erythrodermic psoriasis [Unknown]
  - Drug ineffective [Unknown]
